FAERS Safety Report 5273647-0 (Version None)
Quarter: 2007Q1

REPORT INFORMATION
  Report Type: 
  Country: None (occurrence: None)
  Receive Date: 20070321
  Receipt Date: 20070321
  Transmission Date: 20070707
  Serious: Yes (Disabling)
  Sender: FDA-Public Use
  Company Number: None

PATIENT
  Age: 47 Year
  Sex: Male
  Weight: 81.1939 kg

DRUGS (1)
  1. CRESTOR [Suspect]
     Indication: BLOOD CHOLESTEROL INCREASED
     Dosage: 10MG DAILY PO
     Route: 048
     Dates: start: 20040111, end: 20040211

REACTIONS (9)
  - AMNESIA [None]
  - COORDINATION ABNORMAL [None]
  - DRY EYE [None]
  - DRY SKIN [None]
  - EMOTIONAL DISORDER [None]
  - MITOCHONDRIAL MYOPATHY [None]
  - MULTIPLE ALLERGIES [None]
  - SLEEP DISORDER [None]
  - TREMOR [None]
